FAERS Safety Report 8300675-0 (Version None)
Quarter: 2012Q2

REPORT INFORMATION
  Report Type: 
  Country: None (occurrence: None)
  Receive Date: 20120420
  Receipt Date: 20120410
  Transmission Date: 20120825
  Serious: Yes (Other)
  Sender: FDA-Public Use
  Company Number: PHEH2012US007677

PATIENT
  Sex: Female

DRUGS (13)
  1. SODIUM BICARBONATE [Concomitant]
  2. GLEEVEC [Suspect]
     Dosage: 400 MG, DAILY
  3. OXYCODONE HCL [Concomitant]
  4. LASIX [Concomitant]
  5. ALLEGRA [Concomitant]
  6. ALLOPURINOL [Concomitant]
  7. MAGNESIUM [Concomitant]
  8. COUMADIN [Concomitant]
  9. MECLIZINE [Concomitant]
  10. IRON [Concomitant]
  11. SYNTHROID [Concomitant]
  12. DIAZEPAN [Concomitant]
  13. CALCIUM CARBONATE [Concomitant]

REACTIONS (3)
  - COLON CANCER [None]
  - FALL [None]
  - INJURY [None]
